FAERS Safety Report 14918649 (Version 1)
Quarter: 2018Q2

REPORT INFORMATION
  Report Type: Report from Study
  Country: KR (occurrence: KR)
  Receive Date: 20180521
  Receipt Date: 20180521
  Transmission Date: 20180711
  Serious: Yes (Death)
  Sender: FDA-Public Use
  Company Number: KR-PFIZER INC-2018203604

PATIENT
  Age: 79 Month
  Sex: Male

DRUGS (5)
  1. ETOPOSIDE. [Suspect]
     Active Substance: ETOPOSIDE
     Indication: EPENDYMOMA MALIGNANT
     Dosage: 250 MG/M2, CYCLIC (DAYS -5, -4, -3)
  2. CYCLOPHOSPHAMIDE. [Suspect]
     Active Substance: CYCLOPHOSPHAMIDE
     Indication: EPENDYMOMA MALIGNANT
     Dosage: 1500 MG/M2, CYCLIC (DAYS -8, -7, -6, -5)
  3. THIOTEPA. [Suspect]
     Active Substance: THIOTEPA
     Indication: EPENDYMOMA MALIGNANT
     Dosage: 300 MG/M2, CYCLIC (DAYS -5, -4, -3)
  4. MELPHALAN. [Suspect]
     Active Substance: MELPHALAN
     Indication: EPENDYMOMA MALIGNANT
     Dosage: 60 MG/M2, CYCLIC (DAYS -4, -3, -2)
  5. CARBOPLATIN. [Suspect]
     Active Substance: CARBOPLATIN
     Indication: EPENDYMOMA MALIGNANT
     Dosage: 500 MG/M2, CYCLIC (DAYS -8, -7, -6)

REACTIONS (1)
  - Venoocclusive liver disease [Fatal]
